FAERS Safety Report 9391861 (Version 1)
Quarter: 2013Q3

REPORT INFORMATION
  Report Type: Report from Study
  Country: CA (occurrence: CA)
  Receive Date: 20130709
  Receipt Date: 20130709
  Transmission Date: 20140515
  Serious: Yes (Other)
  Sender: FDA-Public Use
  Company Number: CA-ABBOTT-13P-028-1116203-00

PATIENT
  Age: 38 Year
  Sex: Female
  Weight: 100.79 kg

DRUGS (3)
  1. HUMIRA [Suspect]
     Indication: PRODUCT USED FOR UNKNOWN INDICATION
     Route: 058
     Dates: start: 20120921, end: 201301
  2. HUMIRA [Suspect]
     Route: 058
  3. PURINETHOL [Concomitant]
     Indication: CROHN^S DISEASE
     Route: 048

REACTIONS (4)
  - Intestinal obstruction [Unknown]
  - Inflammation [Unknown]
  - Gastrooesophageal reflux disease [Unknown]
  - Pain [Unknown]
